FAERS Safety Report 6172065-0 (Version None)
Quarter: 2009Q2

REPORT INFORMATION
  Report Type: 
  Country: None (occurrence: None)
  Receive Date: 20090428
  Receipt Date: 20090428
  Transmission Date: 20091009
  Serious: Yes (Death)
  Sender: FDA-Public Use
  Company Number: None

PATIENT
  Sex: Male
  Weight: 81.6475 kg

DRUGS (1)
  1. LEXISCAN [Suspect]
     Indication: CARDIAC PHARMACOLOGIC STRESS TEST
     Dosage: 0.4 MG ONCE IV BOLUS
     Route: 040
     Dates: start: 20090423, end: 20090423

REACTIONS (2)
  - CARDIAC ARREST [None]
  - VENTRICULAR EXTRASYSTOLES [None]
